FAERS Safety Report 25751175 (Version 1)
Quarter: 2025Q3

REPORT INFORMATION
  Report Type: Spontaneous
  Country: US (occurrence: US)
  Receive Date: 20250902
  Receipt Date: 20250902
  Transmission Date: 20251020
  Serious: No
  Sender: TEVA
  Company Number: US-TEVA-VS-3364029

PATIENT
  Age: 47 Year
  Sex: Female

DRUGS (2)
  1. AJOVY [Suspect]
     Active Substance: FREMANEZUMAB-VFRM
     Indication: Product used for unknown indication
     Route: 065
  2. AJOVY [Suspect]
     Active Substance: FREMANEZUMAB-VFRM
     Route: 065

REACTIONS (6)
  - Injection site vesicles [Unknown]
  - Oral pruritus [Unknown]
  - Injection site urticaria [Unknown]
  - Eyelids pruritus [Unknown]
  - Gingival pruritus [Unknown]
  - Nasal pruritus [Unknown]
